FAERS Safety Report 4716565-6 (Version None)
Quarter: 2005Q3

REPORT INFORMATION
  Report Type: 
  Country: None (occurrence: None)
  Receive Date: 20050718
  Receipt Date: 20050425
  Transmission Date: 20060218
  Serious: Yes (Disabling)
  Sender: FDA-Public Use
  Company Number: TRP_0105_2005

PATIENT
  Age: 57 Year
  Sex: Male
  Weight: 90.7194 kg

DRUGS (7)
  1. RIBASPHERE [Suspect]
     Indication: HEPATITIS C
     Dosage: PO
     Route: 048
     Dates: start: 20050310
  2. PEG-INTRON [Suspect]
     Indication: HEPATITIS C
     Dates: start: 20050310
  3. GUAIFENESIN [Concomitant]
  4. HYDROCHLOROTHIAZIDE [Concomitant]
  5. LABETALOL HYDROCHLORIDE [Concomitant]
  6. LISINOPRIL [Concomitant]
  7. VITAMIN E [Concomitant]

REACTIONS (4)
  - ASTHENIA [None]
  - IMPAIRED WORK ABILITY [None]
  - RED BLOOD CELL COUNT DECREASED [None]
  - WEIGHT DECREASED [None]
